FAERS Safety Report 8127231 (Version 4)
Quarter: 2013Q3

REPORT INFORMATION
  Report Type: Spontaneous
  Country: JP (occurrence: JP)
  Receive Date: 20110908
  Receipt Date: 20130715
  Transmission Date: 20140515
  Serious: Yes (Life-Threatening, Hospitalization)
  Sender: FDA-Public Use
  Company Number: JP-NOVOPROD-333293

PATIENT
  Age: 64 Year
  Sex: Male
  Weight: 78 kg

DRUGS (8)
  1. VICTOZA HIKACHU INJECTION [Suspect]
     Indication: LATENT AUTOIMMUNE DIABETES IN ADULTS
     Dosage: 0.3 MG, QD, AT 8 AM IN THE MORNING
     Route: 058
     Dates: start: 20110803
  2. VICTOZA HIKACHU INJECTION [Suspect]
     Dosage: 0.6 MG, QD AT 8 AM IN THE MORNING
     Route: 058
     Dates: start: 20110805, end: 20110805
  3. NOVORAPID CHU FLEXPEN [Concomitant]
     Indication: TYPE 1 DIABETES MELLITUS
     Dosage: 11 U (6-0-5-0), QD
     Route: 065
  4. METGLUCO [Concomitant]
     Dosage: 750 MG, QD
     Route: 048
     Dates: start: 20110727, end: 20110805
  5. BAYASPIRIN [Concomitant]
     Dosage: 100 MG, QD
     Route: 048
     Dates: start: 20110525
  6. MAGMITT [Concomitant]
     Dosage: 1980 MG, QD
     Route: 048
     Dates: start: 20110726
  7. LANTUS                             /01483501/ [Concomitant]
     Dosage: 5 U, (0-0-0-5) QD
     Route: 058
  8. EPL [Concomitant]
     Dosage: 750 MG, QD
     Route: 048

REACTIONS (3)
  - Hypotension [Recovered/Resolved]
  - Oxygen saturation decreased [Recovered/Resolved]
  - Urticaria [Recovered/Resolved]
